FAERS Safety Report 10560710 (Version 2)
Quarter: 2015Q1

REPORT INFORMATION
  Report Type: Spontaneous
  Country: US (occurrence: US)
  Receive Date: 20141103
  Receipt Date: 20150310
  Transmission Date: 20150720
  Serious: Yes (Hospitalization, Other)
  Sender: FDA-Public Use
  Company Number: US-GLAXOSMITHKLINE-US2014011234

PATIENT
  Age: 50 Year
  Sex: Female

DRUGS (13)
  1. ADVAIR DISKUS [Suspect]
     Active Substance: FLUTICASONE PROPIONATE\SALMETEROL XINAFOATE
     Indication: ASTHMA
  2. LYRICA [Concomitant]
     Active Substance: PREGABALIN
  3. METHOCARBAMOL. [Concomitant]
     Active Substance: METHOCARBAMOL
  4. VENTOLIN HFA [Suspect]
     Active Substance: ALBUTEROL SULFATE
     Indication: CHRONIC OBSTRUCTIVE PULMONARY DISEASE
     Dosage: 2 PUFF(S), PRN
     Route: 055
  5. OXYCONTIN [Concomitant]
     Active Substance: OXYCODONE HYDROCHLORIDE
  6. XARELTO [Concomitant]
     Active Substance: RIVAROXABAN
  7. ADVAIR DISKUS [Suspect]
     Active Substance: FLUTICASONE PROPIONATE\SALMETEROL XINAFOATE
     Indication: CHRONIC OBSTRUCTIVE PULMONARY DISEASE
     Dosage: 1 PUFF(S), BID
     Route: 055
     Dates: start: 2005
  8. VENTOLIN HFA [Suspect]
     Active Substance: ALBUTEROL SULFATE
     Indication: ASTHMA
  9. ROBAXIN [Concomitant]
     Active Substance: METHOCARBAMOL
  10. ADVAIR DISKUS [Suspect]
     Active Substance: FLUTICASONE PROPIONATE\SALMETEROL XINAFOATE
     Indication: EMPHYSEMA
     Dosage: 1 PUFF(S), BID
     Route: 055
  11. AMOXICILLIN. [Concomitant]
     Active Substance: AMOXICILLIN
  12. CYMBALTA [Concomitant]
     Active Substance: DULOXETINE HYDROCHLORIDE
  13. VENTOLIN HFA [Suspect]
     Active Substance: ALBUTEROL SULFATE
     Indication: EMPHYSEMA
     Dosage: 2 PUFF(S), PRN
     Route: 055

REACTIONS (13)
  - Pancreatic mass [Not Recovered/Not Resolved]
  - Pulmonary embolism [Recovered/Resolved]
  - Large intestine polyp [Unknown]
  - Neck injury [Unknown]
  - Laceration [Recovering/Resolving]
  - Knee arthroplasty [Unknown]
  - Fall [Unknown]
  - Suture insertion [Recovering/Resolving]
  - Multiple allergies [Not Recovered/Not Resolved]
  - Impaired healing [Recovering/Resolving]
  - Head injury [Unknown]
  - Platelet transfusion [Unknown]
  - Colectomy [Unknown]

NARRATIVE: CASE EVENT DATE: 2005
